FAERS Safety Report 9382695 (Version 3)
Quarter: 2013Q4

REPORT INFORMATION
  Report Type: Report from Study
  Country: FR (occurrence: FR)
  Receive Date: 20130703
  Receipt Date: 20131004
  Transmission Date: 20140711
  Serious: Yes (Hospitalization, Other)
  Sender: FDA-Public Use
  Company Number: FR-GLAXOSMITHKLINE-Z0016917B

PATIENT
  Age: 72 Year
  Sex: Female
  Weight: 60 kg

DRUGS (11)
  1. TRAMETINIB [Suspect]
     Indication: MALIGNANT MELANOMA
     Dosage: 2MG PER DAY
     Route: 048
     Dates: start: 20120709
  2. DABRAFENIB [Suspect]
     Indication: MALIGNANT MELANOMA
     Dosage: 150MG TWICE PER DAY
     Route: 048
     Dates: start: 20120709
  3. DOLIPRANE [Suspect]
     Indication: PYREXIA
     Dosage: 500MG AS REQUIRED
     Route: 048
     Dates: start: 20120906, end: 20121006
  4. SOLUPRED [Concomitant]
     Indication: PYREXIA
     Dosage: 20MG PER DAY
     Route: 048
     Dates: start: 20121007, end: 20121102
  5. ZOPHREN [Concomitant]
     Indication: NAUSEA
     Dosage: 8MG TWICE PER DAY
     Route: 042
     Dates: start: 20121008, end: 20121009
  6. ZOPHREN [Concomitant]
     Indication: NAUSEA
     Dosage: 8MG TWICE PER DAY
     Route: 048
     Dates: start: 20121010, end: 20121012
  7. PRIMPERAN [Concomitant]
     Indication: NAUSEA
     Dosage: 10MG THREE TIMES PER DAY
     Route: 042
     Dates: start: 20121008, end: 20121009
  8. PRIMPERAN [Concomitant]
     Indication: NAUSEA
     Dosage: 10MG THREE TIMES PER DAY
     Route: 048
     Dates: start: 20121010, end: 20121011
  9. MOPRAL [Concomitant]
     Indication: NAUSEA
     Dosage: 20MG PER DAY
     Route: 048
     Dates: start: 20121006, end: 20121012
  10. DIFFU-K [Concomitant]
     Indication: HYPOKALAEMIA
     Dosage: 600MG TWICE PER DAY
     Route: 048
     Dates: start: 20121007, end: 20121102
  11. FLUIDS [Concomitant]
     Indication: DEHYDRATION
     Dosage: 1U SINGLE DOSE
     Route: 042
     Dates: start: 20121006, end: 20121006

REACTIONS (1)
  - Hepatic enzyme increased [Recovering/Resolving]
